FAERS Safety Report 23218852 (Version 7)
Quarter: 2025Q1

REPORT INFORMATION
  Report Type: Other
  Country: US (occurrence: US)
  Receive Date: 20231122
  Receipt Date: 20250127
  Transmission Date: 20250409
  Serious: Yes (Other)
  Sender: TRAVERE THERAPEUTICS
  Company Number: US-TRAVERE-2023TVT00745

PATIENT
  Age: 36 Year
  Sex: Female

DRUGS (7)
  1. FILSPARI [Suspect]
     Active Substance: SPARSENTAN
     Indication: IgA nephropathy
     Route: 048
     Dates: start: 20231102
  2. FILSPARI [Suspect]
     Active Substance: SPARSENTAN
     Indication: Chronic kidney disease
     Route: 048
     Dates: start: 20231031
  3. FILSPARI [Suspect]
     Active Substance: SPARSENTAN
     Indication: Chronic kidney disease
     Route: 048
     Dates: start: 20231116, end: 20241126
  4. FILSPARI [Suspect]
     Active Substance: SPARSENTAN
     Indication: Proteinuria
  5. FILSPARI [Suspect]
     Active Substance: SPARSENTAN
     Indication: Haematuria
  6. FILSPARI [Suspect]
     Active Substance: SPARSENTAN
     Indication: Uterovaginal prolapse
  7. JARDIANCE [Suspect]
     Active Substance: EMPAGLIFLOZIN
     Indication: Product used for unknown indication

REACTIONS (11)
  - Renal impairment [Recovering/Resolving]
  - Decreased appetite [Unknown]
  - Poor quality sleep [Unknown]
  - Nervousness [Unknown]
  - Headache [Unknown]
  - Feeling abnormal [Unknown]
  - Tremor [Unknown]
  - Migraine [Unknown]
  - Hypoglycaemia [Unknown]
  - Blood glucose increased [Unknown]
  - Hepatic function abnormal [Unknown]

NARRATIVE: CASE EVENT DATE: 20231102
